FAERS Safety Report 6492445-3 (Version None)
Quarter: 2009Q4

REPORT INFORMATION
  Report Type: 
  Country: None (occurrence: None)
  Receive Date: 20091211
  Receipt Date: 20091211
  Transmission Date: 20100525
  Serious: Yes (Other)
  Sender: FDA-Public Use
  Company Number: None

PATIENT
  Age: 54 Year
  Sex: Female
  Weight: 59.8748 kg

DRUGS (1)
  1. NITROFURANTOIN [Suspect]
     Indication: CYSTITIS
     Dosage: 100MG EVERY 12 HOURS ORAL
     Route: 048
     Dates: start: 20091122, end: 20091124

REACTIONS (6)
  - ASTHENIA [None]
  - HEADACHE [None]
  - MALAISE [None]
  - MOOD SWINGS [None]
  - PARAESTHESIA [None]
  - RASH [None]
